FAERS Safety Report 5167491-2 (Version None)
Quarter: 2006Q4

REPORT INFORMATION
  Report Type: 
  Country: None (occurrence: None)
  Receive Date: 20061130
  Receipt Date: 20061116
  Transmission Date: 20070319
  Serious: Yes (Other)
  Sender: FDA-Public Use
  Company Number: 009175

PATIENT
  Age: 31 Year
  Sex: Female

DRUGS (7)
  1. DIDANOSINE [Suspect]
     Indication: SYSTEMIC ANTIVIRAL TREATMENT
     Dates: start: 20040901
  2. NORVIR [Suspect]
     Indication: SYSTEMIC ANTIVIRAL TREATMENT
  3. FLUZEON (ENFUVIRTIDE) [Suspect]
     Indication: SYSTEMIC ANTIVIRAL TREATMENT
     Dosage: 180 MG/DAY; SUBCUTANEOUS
     Route: 058
  4. REYATAZ [Suspect]
     Indication: SYSTEMIC ANTIVIRAL TREATMENT
  5. EPIVIR [Suspect]
     Indication: SYSTEMIC ANTIVIRAL TREATMENT
  6. COTRIMOXAZOL ^COPHAR^  (SULFAMETHOXAZOLE, TRIMETHOPRIM) [Suspect]
  7. VALGANCIDOVIR [Suspect]

REACTIONS (5)
  - ABORTION SPONTANEOUS [None]
  - DRUG EXPOSURE DURING PREGNANCY [None]
  - INTRA-UTERINE DEATH [None]
  - PLACENTAL INFARCTION [None]
  - UMBILICAL CORD ABNORMALITY [None]
